FAERS Safety Report 7126554-2 (Version None)
Quarter: 2010Q4

REPORT INFORMATION
  Report Type: 
  Country: None (occurrence: None)
  Receive Date: 20101129
  Receipt Date: 20101115
  Transmission Date: 20110411
  Serious: Yes (Other)
  Sender: FDA-Public Use
  Company Number: JP-PFIZER INC-2010157092

PATIENT
  Age: 56 Year
  Sex: Female

DRUGS (3)
  1. CELECOXIB [Suspect]
     Dosage: 200 MG, UNK
     Route: 048
     Dates: start: 20091105, end: 20100128
  2. TAKEPRON [Concomitant]
     Dosage: UNK
     Route: 048
  3. MUCOSTA [Concomitant]
     Dosage: UNK
     Route: 048

REACTIONS (1)
  - DYSGEUSIA [None]
